FAERS Safety Report 8384329-0 (Version None)
Quarter: 2012Q2

REPORT INFORMATION
  Report Type: 
  Country: None (occurrence: None)
  Receive Date: 20120524
  Receipt Date: 20120514
  Transmission Date: 20120825
  Serious: Yes (Hospitalization, Other)
  Sender: FDA-Public Use
  Company Number: IL-ELI_LILLY_AND_COMPANY-IL201203005105

PATIENT
  Sex: Female

DRUGS (5)
  1. DISOTHIAZIDE [Concomitant]
     Indication: HYPERTENSION
  2. NORMALOL [Concomitant]
     Indication: HYPERTENSION
  3. FORTEO [Suspect]
     Indication: OSTEOPOROSIS
     Dosage: 20 UG, QD
     Route: 058
     Dates: start: 20100826
  4. SIMVASTATIN [Concomitant]
     Indication: HYPERLIPIDAEMIA
  5. ENALAPRIL MALEATE [Concomitant]
     Indication: HYPERTENSION

REACTIONS (2)
  - ANKLE FRACTURE [None]
  - FALL [None]
